FAERS Safety Report 5129266-X (Version None)
Quarter: 2006Q4

REPORT INFORMATION
  Report Type: 
  Country: None (occurrence: None)
  Receive Date: 20061011
  Receipt Date: 20060905
  Transmission Date: 20070319
  Serious: Yes (Hospitalization)
  Sender: FDA-Public Use
  Company Number: 2006104773

PATIENT

DRUGS (1)
  1. PROSTIN E2 [Suspect]
     Indication: LABOUR INDUCTION
     Dosage: 3 MG (2 MG, FIRST DOSE), PLACENTAL
     Route: 064
     Dates: start: 20060522, end: 20060522

REACTIONS (4)
  - APGAR SCORE LOW [None]
  - CAESAREAN SECTION [None]
  - RESUSCITATION [None]
  - TACHYCARDIA FOETAL [None]
